FAERS Safety Report 20896352 (Version 2)
Quarter: 2022Q2

REPORT INFORMATION
  Report Type: Report from Study
  Country: PT (occurrence: PT)
  Receive Date: 20220531
  Receipt Date: 20220606
  Transmission Date: 20220720
  Serious: Yes (Other)
  Sender: FDA-Public Use
  Company Number: PT-NOVARTISPH-NVSC2022PT122458

PATIENT
  Sex: Male
  Weight: 56 kg

DRUGS (1)
  1. CAPMATINIB [Suspect]
     Active Substance: CAPMATINIB
     Indication: Non-small cell lung cancer
     Dosage: UNK, (DESENSIBILIZATION)
     Route: 048
     Dates: start: 20211221

REACTIONS (7)
  - Malignant neoplasm progression [Unknown]
  - Non-small cell lung cancer [Unknown]
  - Creatinine renal clearance increased [Not Recovered/Not Resolved]
  - Nausea [Not Recovered/Not Resolved]
  - Drug tolerance [Unknown]
  - Rash maculo-papular [Unknown]
  - Pleural effusion [Not Recovered/Not Resolved]
